FAERS Safety Report 7899485-8 (Version None)
Quarter: 2011Q4

REPORT INFORMATION
  Report Type: 
  Country: None (occurrence: None)
  Receive Date: 20111107
  Receipt Date: 20110914
  Transmission Date: 20120403
  Serious: Yes (Other)
  Sender: FDA-Public Use
  Company Number: US-AMGEN-USASP2011047383

PATIENT
  Age: 61 Year
  Sex: Female

DRUGS (2)
  1. ENBREL [Suspect]
     Indication: PSORIATIC ARTHROPATHY
     Dosage: 50 MG, 2 TIMES/WK
     Dates: start: 20110621, end: 20110719
  2. METHOTREXATE [Concomitant]
     Dates: start: 20110301

REACTIONS (8)
  - LOCALISED INFECTION [None]
  - TOOTH ABSCESS [None]
  - FIBULA FRACTURE [None]
  - ARTHRALGIA [None]
  - FALL [None]
  - NASAL ULCER [None]
  - ANKLE FRACTURE [None]
  - FOOT FRACTURE [None]
